FAERS Safety Report 18691181 (Version 1)
Quarter: 2021Q1

REPORT INFORMATION
  Report Type: Spontaneous
  Country: US (occurrence: US)
  Receive Date: 20210101
  Receipt Date: 20210101
  Transmission Date: 20210419
  Serious: No
  Sender: FDA-Public Use
  Company Number: US-IPSEN BIOPHARMACEUTICALS, INC.-2020-25301

PATIENT
  Age: 38 Year
  Sex: Female

DRUGS (1)
  1. DYSPORT [Suspect]
     Active Substance: ABOBOTULINUMTOXINA
     Indication: SKIN WRINKLING
     Dosage: 49 IU (GLABELLA)
     Route: 065
     Dates: start: 20201116, end: 20201116

REACTIONS (5)
  - Incorrect product administration duration [Unknown]
  - Reaction to excipient [Unknown]
  - Product preparation error [Unknown]
  - Injection site pain [Recovered/Resolved]
  - Therapeutic response shortened [Unknown]

NARRATIVE: CASE EVENT DATE: 2020
